FAERS Safety Report 6750540-5 (Version None)
Quarter: 2010Q2

REPORT INFORMATION
  Report Type: 
  Country: None (occurrence: None)
  Receive Date: 20100528
  Receipt Date: 20100528
  Transmission Date: 20101027
  Serious: No
  Sender: FDA-Public Use
  Company Number: None

PATIENT
  Age: 49 Year
  Weight: 55.7924 kg

DRUGS (1)
  1. RISPERDAL [Suspect]
     Indication: SCHIZOAFFECTIVE DISORDER
     Dates: start: 20090601

REACTIONS (3)
  - AMENORRHOEA [None]
  - MICTURITION FREQUENCY DECREASED [None]
  - SEXUAL DYSFUNCTION [None]
